FAERS Safety Report 7260933-8 (Version None)
Quarter: 2011Q1

REPORT INFORMATION
  Report Type: 
  Country: None (occurrence: None)
  Receive Date: 20110130
  Receipt Date: 20101222
  Transmission Date: 20110831
  Serious: No
  Sender: FDA-Public Use
  Company Number: US-ABBOTT-10P-163-0693992-00

PATIENT
  Age: 19 Year
  Sex: Male
  Weight: 83.99 kg

DRUGS (1)
  1. HUMIRA [Suspect]
     Indication: CROHN'S DISEASE
     Route: 058
     Dates: start: 20080101

REACTIONS (9)
  - DIARRHOEA [None]
  - CROHN'S DISEASE [None]
  - MALAISE [None]
  - DIARRHOEA HAEMORRHAGIC [None]
  - VOMITING [None]
  - PROTEIN TOTAL INCREASED [None]
  - GASTROENTERITIS VIRAL [None]
  - WHITE BLOOD CELL COUNT INCREASED [None]
  - PYREXIA [None]
